FAERS Safety Report 17460548 (Version 4)
Quarter: 2020Q2

REPORT INFORMATION
  Report Type: Spontaneous
  Country: US (occurrence: US)
  Receive Date: 20200226
  Receipt Date: 20200413
  Transmission Date: 20200713
  Serious: Yes (Other)
  Sender: FDA-Public Use
  Company Number: US-PFIZER INC-2020085483

PATIENT
  Age: 79 Year
  Sex: Female

DRUGS (1)
  1. LYRICA [Suspect]
     Active Substance: PREGABALIN
     Dosage: UNK

REACTIONS (6)
  - Neuropathy peripheral [Unknown]
  - Pain [Unknown]
  - Back disorder [Unknown]
  - Therapeutic product effect incomplete [Unknown]
  - Intentional product misuse [Unknown]
  - Coronary artery occlusion [Unknown]
